FAERS Safety Report 17038195 (Version 1)
Quarter: 2019Q4

REPORT INFORMATION
  Report Type: Spontaneous
  Country: US (occurrence: US)
  Receive Date: 20191115
  Receipt Date: 20191115
  Transmission Date: 20200122
  Serious: No
  Sender: FDA-Public Use
  Company Number: US-ASTRAZENECA-2019SF47950

PATIENT
  Age: 73 Year
  Sex: Male
  Weight: 88.5 kg

DRUGS (5)
  1. BYDUREON BCISE [Suspect]
     Active Substance: EXENATIDE
     Indication: TYPE 2 DIABETES MELLITUS
     Route: 058
     Dates: start: 2014, end: 2017
  2. BYDUREON BCISE [Suspect]
     Active Substance: EXENATIDE
     Indication: TYPE 2 DIABETES MELLITUS
     Route: 058
     Dates: start: 201908
  3. TRULICITY [Concomitant]
     Active Substance: DULAGLUTIDE
     Route: 058
     Dates: start: 2017, end: 201908
  4. METFORMIN [Concomitant]
     Active Substance: METFORMIN HYDROCHLORIDE
     Route: 048
  5. GLIMPERIDE [Concomitant]
     Active Substance: GLIMEPIRIDE
     Route: 048

REACTIONS (3)
  - Device issue [Unknown]
  - Product dose omission [Unknown]
  - Glycosylated haemoglobin increased [Unknown]

NARRATIVE: CASE EVENT DATE: 2017
